FAERS Safety Report 10084188 (Version 2)
Quarter: 2014Q2

REPORT INFORMATION
  Report Type: Not Available
  Country: FR (occurrence: FR)
  Receive Date: 20140417
  Receipt Date: 20140507
  Transmission Date: 20141212
  Serious: Yes (Hospitalization)
  Sender: FDA-Public Use
  Company Number: FR-BEH-2014041768

PATIENT
  Age: 83 Year
  Sex: Female

DRUGS (15)
  1. PRIVIGEN [Suspect]
     Dosage: FIRST COURSE
     Route: 042
     Dates: start: 20130303, end: 20130303
  2. PRIVIGEN [Suspect]
     Indication: CHRONIC LYMPHOCYTIC LEUKAEMIA
     Dosage: 2ND COURSE
     Route: 042
     Dates: start: 20130405, end: 20130405
  3. PRIVIGEN [Suspect]
     Route: 042
     Dates: start: 20130607, end: 20130607
  4. PRIVIGEN [Suspect]
     Route: 042
     Dates: start: 20130716, end: 20130716
  5. PREVISCAN [Concomitant]
  6. TAHOR [Concomitant]
  7. CANDESARTAN [Concomitant]
  8. NEBIVOLOL [Concomitant]
  9. CALCIUM VIT D3 [Concomitant]
  10. ALPRAZOLAM [Concomitant]
  11. DOMPERIDONE [Concomitant]
  12. TARDYFERON [Concomitant]
  13. PANTOPRAZOLE [Concomitant]
  14. DOLIPRANE [Concomitant]
  15. ATARAX [Concomitant]

REACTIONS (5)
  - Dermatitis exfoliative [Recovered/Resolved]
  - Rash [Recovered/Resolved]
  - Rash [Recovered/Resolved]
  - Pruritus [Recovered/Resolved]
  - Eczema [Recovered/Resolved]
